FAERS Safety Report 14145088 (Version 1)
Quarter: 2017Q4

REPORT INFORMATION
  Report Type: Spontaneous
  Country: FR (occurrence: FR)
  Receive Date: 20171031
  Receipt Date: 20171031
  Transmission Date: 20180321
  Serious: Yes (Other)
  Sender: FDA-Public Use
  Company Number: FR-PFIZER INC-2017466388

PATIENT
  Age: 65 Year
  Sex: Male

DRUGS (11)
  1. TINZAPARIN [Concomitant]
     Active Substance: TINZAPARIN
     Dosage: 15000 IU, DAILY
  2. CARBOPLATIN. [Suspect]
     Active Substance: CARBOPLATIN
     Indication: LUNG ADENOCARCINOMA
     Dosage: UNK
     Dates: start: 20170830
  3. LASILIX /00032601/ [Concomitant]
     Active Substance: FUROSEMIDE
     Dosage: UNK
  4. CRESTOR [Concomitant]
     Active Substance: ROSUVASTATIN CALCIUM
     Dosage: UNK
  5. JANUVIA [Concomitant]
     Active Substance: SITAGLIPTIN PHOSPHATE
     Dosage: 100 MG, DAILY
  6. CORTANCYL [Concomitant]
     Active Substance: PREDNISONE
     Dosage: 120 MG, DAILY
  7. BACTRIM [Concomitant]
     Active Substance: SULFAMETHOXAZOLE\TRIMETHOPRIM
     Dosage: 1 DF, 3 TIMES WEEKLY
  8. ALDACTONE [Concomitant]
     Active Substance: SPIRONOLACTONE
     Dosage: UNK
  9. NOVONORM [Concomitant]
     Active Substance: REPAGLINIDE
     Dosage: 3 TABLETS IN THE MORNING AND AT MIDDAY AND ONE TABLET IN THE EVENING
  10. ALIMTA [Suspect]
     Active Substance: PEMETREXED DISODIUM
     Indication: LUNG ADENOCARCINOMA
     Dosage: UNK
     Dates: start: 20170830
  11. DIFFU K [Concomitant]
     Active Substance: POTASSIUM CHLORIDE
     Dosage: UNK

REACTIONS (10)
  - Cerebrovascular accident [Recovering/Resolving]
  - Atrial fibrillation [Recovering/Resolving]
  - Thrombocytopenia [Recovering/Resolving]
  - Dysarthria [Recovering/Resolving]
  - Anaemia [Recovering/Resolving]
  - Acute respiratory distress syndrome [Recovering/Resolving]
  - Pleural effusion [Recovering/Resolving]
  - Neutropenia [Recovering/Resolving]
  - Gastrooesophageal reflux disease [Recovering/Resolving]
  - Vasodilatation [Unknown]

NARRATIVE: CASE EVENT DATE: 20170831
